FAERS Safety Report 8275155-1 (Version None)
Quarter: 2012Q2

REPORT INFORMATION
  Report Type: 
  Country: None (occurrence: None)
  Receive Date: 20120411
  Receipt Date: 20120405
  Transmission Date: 20120825
  Serious: Yes (Hospitalization)
  Sender: FDA-Public Use
  Company Number: PHHO2012FR005434

PATIENT
  Sex: Male
  Weight: 38 kg

DRUGS (9)
  1. ZOFRAN [Concomitant]
     Indication: ANTIEMETIC SUPPORTIVE CARE
     Dosage: UNK
     Route: 048
     Dates: start: 20111007
  2. MESNA [Concomitant]
     Indication: PROPHYLAXIS
     Dosage: UNK
     Route: 042
     Dates: start: 20111007, end: 20111009
  3. INNOHEP [Concomitant]
     Indication: THROMBOSIS PROPHYLAXIS
     Dosage: UNK
     Route: 058
     Dates: start: 20110913
  4. ETOPOPHOS PRESERVATIVE FREE [Concomitant]
     Dosage: UNK
     Dates: start: 20110607
  5. ETOPOSIDE [Suspect]
     Indication: BONE SARCOMA
     Dosage: 3.68 G, UNK
     Dates: start: 20110607, end: 20111009
  6. NO TREATMENT RECEIVED [Suspect]
     Indication: BONE SARCOMA
     Dosage: UNK
  7. METHOTREXATE [Suspect]
     Indication: BONE SARCOMA
     Dosage: 14.75 G, UNK
     Dates: start: 20110517, end: 20110929
  8. IFOSFAMIDE [Suspect]
     Indication: BONE SARCOMA
     Dosage: 92 MG, UNK
     Dates: start: 20110607, end: 20111009
  9. ATARAX [Concomitant]
     Indication: PROPHYLAXIS
     Dosage: UNK
     Route: 048
     Dates: start: 20111007, end: 20111010

REACTIONS (1)
  - DEVICE MALFUNCTION [None]
